FAERS Safety Report 4706393-X (Version None)
Quarter: 2005Q2

REPORT INFORMATION
  Report Type: 
  Country: None (occurrence: None)
  Receive Date: 20050629
  Receipt Date: 20050412
  Transmission Date: 20051028
  Serious: No
  Sender: FDA-Public Use
  Company Number: 05P-163-0297095-00

PATIENT
  Sex: Female
  Weight: 63.5036 kg

DRUGS (8)
  1. HUMIRA [Suspect]
     Indication: RHEUMATOID ARTHRITIS
     Dosage: 40 MG, 1 IN 2 WK, SUBCUTANEOUS
     Route: 058
     Dates: start: 20050407
  2. METHOTREXATE SODIUM [Concomitant]
  3. LEUCOVOR [Concomitant]
  4. PREDNISONE TAB [Concomitant]
  5. LEVOTHYROXINE SODIUM [Concomitant]
  6. ATORVASTATIN CALCIUM [Concomitant]
  7. ATENOLOL [Concomitant]
  8. ASPIRIN [Concomitant]

REACTIONS (2)
  - ERYTHEMA [None]
  - PARAESTHESIA [None]
